FAERS Safety Report 6024792-3 (Version None)
Quarter: 2008Q4

REPORT INFORMATION
  Report Type: 
  Country: None (occurrence: None)
  Receive Date: 20081231
  Receipt Date: 20081229
  Transmission Date: 20090506
  Serious: Yes (Death, Life-Threatening, Hospitalization)
  Sender: FDA-Public Use
  Company Number: DE-WYE-H07387208

PATIENT
  Sex: Female

DRUGS (3)
  1. CORDAREX [Suspect]
     Route: 048
     Dates: start: 20080519
  2. ZOFRAN [Suspect]
     Route: 048
     Dates: start: 20080523, end: 20080528
  3. TAVOR [Suspect]
     Route: 048
     Dates: start: 20080522, end: 20080527

REACTIONS (3)
  - HEPATITIS ACUTE [None]
  - MULTI-ORGAN FAILURE [None]
  - SHOCK [None]
